FAERS Safety Report 20254137 (Version 2)
Quarter: 2022Q1

REPORT INFORMATION
  Report Type: Spontaneous
  Country: BR (occurrence: BR)
  Receive Date: 20211230
  Receipt Date: 20220107
  Transmission Date: 20220423
  Serious: No
  Sender: FDA-Public Use
  Company Number: BR-CELLTRION INC.-2021BR017730

PATIENT

DRUGS (5)
  1. TRUXIMA [Suspect]
     Active Substance: RITUXIMAB-ABBS
     Indication: Rheumatoid arthritis
     Dosage: 1000MG EV (ROUTE: ENDOVENOUS); 3 AMPOULS OF 100ML TRUXIMA
     Route: 042
     Dates: start: 20190326
  2. TRUXIMA [Suspect]
     Active Substance: RITUXIMAB-ABBS
     Indication: Antisynthetase syndrome
     Dosage: 1000MG EV (ROUTE: ENDOVENOUS); 3 AMPOULS OF 100ML TRUXIMA
     Route: 042
     Dates: start: 20211213
  3. DIPHENHYDRAMINE [Concomitant]
     Active Substance: DIPHENHYDRAMINE
     Indication: Premedication
     Dosage: 50 MG (ROUTE: ENDOVENOUS)
     Route: 042
     Dates: start: 20211213, end: 20211213
  4. ANDROCORTYL [Concomitant]
     Indication: Premedication
     Dosage: 100 MG (ROUTE: ENDOVENOUS)
     Route: 042
     Dates: start: 20211213, end: 20211213
  5. HYDROCORTISONE [Concomitant]
     Active Substance: HYDROCORTISONE
     Indication: Premedication
     Dosage: 300 MG (ROUTE: ENDOVENOUS)
     Route: 042
     Dates: start: 20211213, end: 20211213

REACTIONS (2)
  - Throat irritation [Recovered/Resolved]
  - Off label use [Unknown]

NARRATIVE: CASE EVENT DATE: 20211213
